FAERS Safety Report 8493443-0 (Version None)
Quarter: 2012Q3

REPORT INFORMATION
  Report Type: 
  Country: None (occurrence: None)
  Receive Date: 20120706
  Receipt Date: 20120624
  Transmission Date: 20120928
  Serious: Yes (Other)
  Sender: FDA-Public Use
  Company Number: GB-BRISTOL-MYERS SQUIBB COMPANY-16708703

PATIENT
  Age: 36 Year
  Sex: Female

DRUGS (4)
  1. METFORMIN HCL [Suspect]
     Indication: TYPE 2 DIABETES MELLITUS
  2. BIPHASIC INSULIN [Suspect]
     Indication: TYPE 2 DIABETES MELLITUS
  3. ROSIGLITAZONE [Suspect]
     Indication: TYPE 2 DIABETES MELLITUS
  4. GLICLAZIDE [Suspect]
     Indication: TYPE 2 DIABETES MELLITUS

REACTIONS (4)
  - HYPERGLYCAEMIA [None]
  - HYPERTENSION [None]
  - THROMBOTIC STROKE [None]
  - WEIGHT INCREASED [None]
